FAERS Safety Report 13572295 (Version 1)
Quarter: 2017Q2

REPORT INFORMATION
  Report Type: Spontaneous
  Country: US (occurrence: US)
  Receive Date: 20170523
  Receipt Date: 20170523
  Transmission Date: 20170830
  Serious: No
  Sender: FDA-Public Use
  Company Number: US-B.I. PHARMACEUTICALS,INC./RIDGEFIELD-2017-BI-028258

PATIENT
  Age: 45 Year
  Sex: Female

DRUGS (12)
  1. VIMPAT [Concomitant]
     Active Substance: LACOSAMIDE
     Indication: MULTIPLE SCLEROSIS
     Dosage: 1 TABLET BID;  FORM STRENGTH: 200 MG; FORMULATION: TABLET
     Route: 048
  2. SINGULAIR [Concomitant]
     Active Substance: MONTELUKAST SODIUM
     Indication: CHRONIC OBSTRUCTIVE PULMONARY DISEASE
     Dosage: 1 TABLET 1 TIME DAILY;  FORM STRENGTH: 10 MG; FORMULATION: TABLET
     Route: 048
  3. METOPROLOL. [Concomitant]
     Active Substance: METOPROLOL
     Indication: CARDIAC FAILURE CONGESTIVE
     Dosage: 1 TABLET 1 TIME DAILY;  FORM STRENGTH: 50 MG; FORMULATION: TABLET
     Route: 048
     Dates: start: 201502
  4. DETROL [Concomitant]
     Active Substance: TOLTERODINE TARTRATE
     Indication: POLLAKIURIA
     Dosage: 1 TABLET 1 TIME DAILY;  FORM STRENGTH: 4 MG; FORMULATION: TABLET
     Route: 048
     Dates: start: 201609
  5. BACLOFEN. [Concomitant]
     Active Substance: BACLOFEN
     Indication: MUSCLE SPASMS
     Dosage: 1 TABLET QID;  FORM STRENGTH: 20 MG; FORMULATION: TABLET
     Route: 048
  6. FLEXERIL [Concomitant]
     Active Substance: CYCLOBENZAPRINE HYDROCHLORIDE
     Indication: MUSCLE SPASMS
     Dosage: 1 TABLET TID PRN;  FORM STRENGTH: 10 MG; FORMULATION: TABLET
     Route: 048
  7. PROTONIX [Concomitant]
     Active Substance: PANTOPRAZOLE SODIUM
     Indication: GASTROOESOPHAGEAL REFLUX DISEASE
     Dosage: 1 TABLET 1 TIME DAILY;  FORM STRENGTH: 40 MG; FORMULATION: TABLET
     Route: 048
  8. FLOMAX [Suspect]
     Active Substance: TAMSULOSIN HYDROCHLORIDE
     Indication: MULTIPLE SCLEROSIS
     Dosage: 1 TABLET DAILY;  FORM STRENGTH: 0.4 MG; FORMULATION: CAPSULE? ADMINISTRATION CORRECT? YES ?ACTION(S)
     Route: 048
     Dates: start: 201702
  9. FLOMAX [Suspect]
     Active Substance: TAMSULOSIN HYDROCHLORIDE
     Indication: BLADDER DISORDER
  10. FAMOTIDINE. [Concomitant]
     Active Substance: FAMOTIDINE
     Indication: GASTROOESOPHAGEAL REFLUX DISEASE
     Dosage: 1 TABLET BID;  FORM STRENGTH: 20 MG; FORMULATION: TABLET
     Route: 048
  11. TIMOLOL OPHTHALMIC SOLUTION 0.5% [Concomitant]
     Active Substance: TIMOLOL
     Indication: OPTIC NEURITIS
     Dosage: 1 DROP EACH EYE BID;
     Route: 031
  12. PRED FORTE [Concomitant]
     Active Substance: PREDNISOLONE ACETATE
     Indication: OPTIC NEURITIS
     Dosage: 1 DROP EACH EYE BID;
     Route: 031

REACTIONS (2)
  - Therapeutic response unexpected [Not Recovered/Not Resolved]
  - Off label use [Unknown]

NARRATIVE: CASE EVENT DATE: 201702
